FAERS Safety Report 5515460-2 (Version None)
Quarter: 2007Q4

REPORT INFORMATION
  Report Type: 
  Country: None (occurrence: None)
  Receive Date: 20071113
  Receipt Date: 20070222
  Transmission Date: 20080405
  Serious: No
  Sender: FDA-Public Use
  Company Number: A0640586A

PATIENT
  Sex: Male

DRUGS (7)
  1. COREG [Suspect]
     Dosage: 3.125MG TWICE PER DAY
     Route: 048
  2. ZOCOR [Concomitant]
  3. COLCHICINE [Concomitant]
  4. PLAVIX [Concomitant]
  5. PRAVACHOL [Concomitant]
  6. COZAAR [Concomitant]
  7. FUROSEMIDE [Concomitant]

REACTIONS (4)
  - ASTHENIA [None]
  - DRUG INEFFECTIVE [None]
  - FATIGUE [None]
  - SEXUAL DYSFUNCTION [None]
